FAERS Safety Report 25920880 (Version 1)
Quarter: 2025Q4

REPORT INFORMATION
  Report Type: Other
  Country: US (occurrence: US)
  Receive Date: 20251014
  Receipt Date: 20251014
  Transmission Date: 20260117
  Serious: Yes (Life-Threatening, Hospitalization)
  Sender: VITRUVIAS THERAPEUTICS
  Company Number: US-Vitruvias Therapeutics-2186581

PATIENT
  Age: 47 Year
  Sex: Female

DRUGS (4)
  1. BUPROPION [Suspect]
     Active Substance: BUPROPION
  2. BUSPAR [Suspect]
     Active Substance: BUSPIRONE HYDROCHLORIDE
  3. XANAX [Suspect]
     Active Substance: ALPRAZOLAM
  4. QUETIAPINE [Suspect]
     Active Substance: QUETIAPINE

REACTIONS (2)
  - Serotonin syndrome [Recovered/Resolved]
  - Suicide attempt [Recovered/Resolved]
